FAERS Safety Report 6055119-9 (Version None)
Quarter: 2009Q1

REPORT INFORMATION
  Report Type: 
  Country: None (occurrence: None)
  Receive Date: 20090122
  Receipt Date: 20090112
  Transmission Date: 20090719
  Serious: Yes (Hospitalization)
  Sender: FDA-Public Use
  Company Number: 2009-189558-NL

PATIENT
  Age: 18 Year
  Sex: Female
  Weight: 49.9 kg

DRUGS (3)
  1. IMPLANON [Suspect]
     Indication: CONTRACEPTION
     Dosage: SUBDERMAL
     Route: 059
     Dates: start: 20081001, end: 20090112
  2. EFFEXOR [Concomitant]
  3. ADDERALL 10 [Concomitant]

REACTIONS (2)
  - CONVULSION [None]
  - SYNCOPE [None]
